FAERS Safety Report 5271905-7 (Version None)
Quarter: 2007Q1

REPORT INFORMATION
  Report Type: 
  Country: None (occurrence: None)
  Receive Date: 20070319
  Receipt Date: 20070309
  Transmission Date: 20070707
  Serious: Yes (Hospitalization, Disabling)
  Sender: FDA-Public Use
  Company Number: 163-20785-07030558

PATIENT
  Age: 62 Year
  Sex: Male
  Weight: 84.369 kg

DRUGS (14)
  1. THALOMID [Suspect]
     Indication: PROSTATE CANCER
     Dosage: 100 MG, 1 IN 1 D, ORAL
     Route: 048
     Dates: start: 20070206, end: 20070201
  2. ALBUTEROL [Concomitant]
  3. ASPIRIN [Concomitant]
  4. CARISOPRODOL [Concomitant]
  5. DIAZEPAM [Concomitant]
  6. GUAIFENESIN [Concomitant]
  7. HYDROCODONE (HYDROCODONE) [Concomitant]
  8. LITHIUM CARBONATE [Concomitant]
  9. PREDNISONE TAB [Concomitant]
  10. MOXIFLOXACIN HCL [Concomitant]
  11. PROCHLORPERAZINE MALEATE [Concomitant]
  12. RISPERIDONE [Concomitant]
  13. SENNOSIDES (SENNOSIDE A+B CALCIUM) [Concomitant]
  14. WARFARIN SODIUM [Concomitant]

REACTIONS (6)
  - DECREASED APPETITE [None]
  - DYSARTHRIA [None]
  - HEADACHE [None]
  - MUSCULAR WEAKNESS [None]
  - NEUROLOGICAL SYMPTOM [None]
  - PAIN [None]
